FAERS Safety Report 24098789 (Version 1)
Quarter: 2024Q3

REPORT INFORMATION
  Report Type: Spontaneous
  Country: US (occurrence: US)
  Receive Date: 20240716
  Receipt Date: 20240716
  Transmission Date: 20241017
  Serious: No
  Sender: NOVO NORDISK
  Company Number: US-NOVOPROD-1179224

PATIENT
  Sex: Female

DRUGS (1)
  1. OZEMPIC [Suspect]
     Active Substance: SEMAGLUTIDE
     Indication: Weight control
     Dosage: 0.25 MG
     Route: 058
     Dates: start: 20240212

REACTIONS (5)
  - Decreased appetite [Unknown]
  - Injection site discharge [Unknown]
  - Product use in unapproved indication [Unknown]
  - Product confusion [Unknown]
  - Wrong technique in product usage process [Not Recovered/Not Resolved]
